FAERS Safety Report 6758935-0 (Version None)
Quarter: 2010Q2

REPORT INFORMATION
  Report Type: 
  Country: None (occurrence: None)
  Receive Date: 20100607
  Receipt Date: 20100507
  Transmission Date: 20101027
  Serious: No
  Sender: FDA-Public Use
  Company Number: US-BAYER-201015350BCC

PATIENT
  Age: 17 Year
  Sex: Female
  Weight: 52 kg

DRUGS (4)
  1. MIDOL [Suspect]
     Indication: DYSMENORRHOEA
     Dosage: TOTAL DAILY DOSE: 440 MG  UNIT DOSE: 220 MG
     Route: 048
     Dates: start: 20100506
  2. IBUPROFEN [Concomitant]
     Dosage: AS USED: 3 DF  UNIT DOSE: 1 DF
  3. MIRALAX [Concomitant]
  4. FLUOXETINE [Concomitant]

REACTIONS (1)
  - ABDOMINAL PAIN UPPER [None]
